FAERS Safety Report 24201875 (Version 1)
Quarter: 2024Q3

REPORT INFORMATION
  Report Type: Spontaneous
  Country: US (occurrence: US)
  Receive Date: 20240812
  Receipt Date: 20240812
  Transmission Date: 20241017
  Serious: No
  Sender: JOURNEY MEDICAL CORPORATION
  Company Number: US-JOURNEY MEDICAL CORPORATION-2023JNY00246

PATIENT
  Sex: Male

DRUGS (1)
  1. QBREXZA [Suspect]
     Active Substance: GLYCOPYRRONIUM TOSYLATE
     Indication: Hyperhidrosis
     Dosage: 1 DOSAGE FORM, 1X/DAY ON HIS HANDS
     Route: 061
     Dates: start: 2021

REACTIONS (3)
  - Mydriasis [Not Recovered/Not Resolved]
  - Anisocoria [Not Recovered/Not Resolved]
  - Off label use [Not Recovered/Not Resolved]

NARRATIVE: CASE EVENT DATE: 20210101
